FAERS Safety Report 4357665-2 (Version None)
Quarter: 2004Q2

REPORT INFORMATION
  Report Type: 
  Country: None (occurrence: None)
  Receive Date: 20040513
  Receipt Date: 20030130
  Transmission Date: 20050107
  Serious: Yes (Death, Hospitalization, Disabling)
  Sender: FDA-Public Use
  Company Number: US-MERCK-0302USA00113

PATIENT
  Age: 63 Year
  Sex: Female
  Weight: 77 kg

DRUGS (4)
  1. ANALGESIC OR ANESTHETIC (UNSPECIFIED) [Concomitant]
     Route: 065
  2. CELEBREX [Concomitant]
     Route: 065
     Dates: end: 19990921
  3. VIOXX [Suspect]
     Indication: ARTHRITIS
     Route: 048
     Dates: start: 19990901, end: 19991001
  4. VIOXX [Suspect]
     Route: 048
     Dates: start: 19991007

REACTIONS (13)
  - ARRHYTHMIA [None]
  - BLOOD CHOLESTEROL INCREASED [None]
  - BLOOD TRIGLYCERIDES INCREASED [None]
  - BODY TEMPERATURE DECREASED [None]
  - CARDIAC ARREST [None]
  - DYSPEPSIA [None]
  - ELECTROMECHANICAL DISSOCIATION [None]
  - HEART RATE IRREGULAR [None]
  - INJURY [None]
  - LUNG DISORDER [None]
  - MYDRIASIS [None]
  - MYOCARDIAL INFARCTION [None]
  - PERIORBITAL HAEMATOMA [None]
